FAERS Safety Report 9201660 (Version 1)
Quarter: 2013Q2

REPORT INFORMATION
  Report Type: Spontaneous
  Country: IT (occurrence: IT)
  Receive Date: 20130401
  Receipt Date: 20130401
  Transmission Date: 20140414
  Serious: Yes (Other)
  Sender: FDA-Public Use
  Company Number: PHHY2013IT030647

PATIENT
  Age: 41 Year
  Sex: Female

DRUGS (1)
  1. ZOMETA [Suspect]
     Indication: OSTEOPOROSIS
     Dosage: 8 MG, YEARLY
     Route: 030
     Dates: start: 19990101, end: 2007

REACTIONS (1)
  - Osteonecrosis of jaw [Not Recovered/Not Resolved]
